FAERS Safety Report 8136458-4 (Version None)
Quarter: 2012Q1

REPORT INFORMATION
  Report Type: 
  Country: None (occurrence: None)
  Receive Date: 20120214
  Receipt Date: 20120208
  Transmission Date: 20120608
  Serious: Yes (Other)
  Sender: FDA-Public Use
  Company Number: CHPA2012US002814

PATIENT
  Age: 34 Year
  Sex: Male

DRUGS (1)
  1. VOLTAREN [Suspect]
     Indication: ARTHRALGIA
     Dosage: LITTLE BIT ONCE AT NIGHT
     Route: 061
     Dates: start: 20110101

REACTIONS (2)
  - ARTHRALGIA [None]
  - OFF LABEL USE [None]
